FAERS Safety Report 15952358 (Version 3)
Quarter: 2019Q2

REPORT INFORMATION
  Report Type: Spontaneous
  Country: US (occurrence: US)
  Receive Date: 20190212
  Receipt Date: 20190415
  Transmission Date: 20190711
  Serious: No
  Sender: FDA-Public Use
  Company Number: US-PFIZER INC-2019053619

PATIENT
  Age: 76 Year
  Sex: Male
  Weight: 92.99 kg

DRUGS (5)
  1. GABAPENTIN. [Suspect]
     Active Substance: GABAPENTIN
     Indication: NEUROPATHY PERIPHERAL
     Dosage: 600 MG, 3X/DAY
     Route: 048
  2. GABAPENTIN. [Suspect]
     Active Substance: GABAPENTIN
     Indication: PAIN
     Dosage: 4 DF, DAILY
  3. HYDROCHLOROTHIAZIDE. [Concomitant]
     Active Substance: HYDROCHLOROTHIAZIDE
     Indication: DEHYDRATION
     Dosage: 12.5 MG, 1X/DAY
     Route: 048
  4. NABUMETONE. [Concomitant]
     Active Substance: NABUMETONE
     Indication: SPONDYLITIS
     Dosage: 750 MG, DAILY (BROKE IT IN HALF AND TOOK ONE IN THE MORNING AND ONE AT NIGHT)
  5. GABAPENTIN. [Suspect]
     Active Substance: GABAPENTIN
     Dosage: UNK, 3X/DAY

REACTIONS (3)
  - Malaise [Unknown]
  - Cough [Unknown]
  - Drug ineffective for unapproved indication [Not Recovered/Not Resolved]
